FAERS Safety Report 4524518-6 (Version None)
Quarter: 2005Q1

REPORT INFORMATION
  Report Type: 
  Country: None (occurrence: None)
  Receive Date: 20041117
  Receipt Date: 20040122
  Transmission Date: 20050727
  Serious: No
  Sender: FDA-Public Use
  Company Number: US-JNJFOC-20040104672

PATIENT
  Sex: Female

DRUGS (1)
  1. LEVAQUIN [Suspect]
     Indication: DRUG USE FOR UNKNOWN INDICATION
     Dosage: 500 MG, 6 IN 1 DAY, ORAL
     Route: 048
     Dates: start: 20040122

REACTIONS (2)
  - ACCIDENTAL OVERDOSE [None]
  - NO ADVERSE DRUG EFFECT [None]
